FAERS Safety Report 9415202 (Version 1)
Quarter: 2013Q3

REPORT INFORMATION
  Report Type: Spontaneous
  Country: US (occurrence: US)
  Receive Date: 20130723
  Receipt Date: 20130723
  Transmission Date: 20140515
  Serious: No
  Sender: FDA-Public Use
  Company Number: US-BAYER-2013-088847

PATIENT
  Age: 38 Year
  Sex: Female
  Weight: 77 kg

DRUGS (4)
  1. ALEVE CAPLET [Suspect]
     Indication: ARTHRITIS
     Dosage: 1 DF, BID
     Route: 048
     Dates: start: 20130709, end: 20130711
  2. VICODIN [Concomitant]
  3. FLEXERIL [Concomitant]
  4. LIDOCAINE [Concomitant]

REACTIONS (1)
  - Drug ineffective [None]
